FAERS Safety Report 5156025-4 (Version None)
Quarter: 2006Q4

REPORT INFORMATION
  Report Type: 
  Country: None (occurrence: None)
  Receive Date: 20061114
  Receipt Date: 20061030
  Transmission Date: 20070319
  Serious: Yes (Death)
  Sender: FDA-Public Use
  Company Number: 2447

PATIENT
  Age: 58 Year
  Sex: Female
  Weight: 66.2252 kg

DRUGS (6)
  1. AVINZA [Suspect]
     Indication: FACIAL PAIN
     Dosage: 60 MG DAILY PO
     Route: 048
     Dates: start: 20061016, end: 20061001
  2. HYDROMORPHONE HYDROCHLORIDE [Concomitant]
  3. PREGABALIN [Concomitant]
     Indication: HEADACHE
  4. PREGABALIN [Concomitant]
     Indication: NECK PAIN
  5. TIZANIDINE HCL [Concomitant]
  6. VENLAFAXIINE HCL [Concomitant]

REACTIONS (1)
  - DEATH [None]
